FAERS Safety Report 19041999 (Version 2)
Quarter: 2024Q3

REPORT INFORMATION
  Report Type: Spontaneous
  Country: US (occurrence: US)
  Receive Date: 20210323
  Receipt Date: 20240711
  Transmission Date: 20241016
  Serious: Yes (Hospitalization, Disabling, Other)
  Sender: NOVARTIS
  Company Number: US-NOVARTISPH-NVSC2021US061554

PATIENT
  Age: 60 Year
  Sex: Male

DRUGS (1)
  1. LUTATHERA [Suspect]
     Active Substance: LUTETIUM OXODOTREOTIDE LU-177
     Indication: Gastroenteropancreatic neuroendocrine tumour disease
     Dosage: UNK, ONCE/SINGLE
     Route: 065
     Dates: start: 20201215, end: 20201215

REACTIONS (3)
  - Carcinoid crisis [Recovered/Resolved with Sequelae]
  - Hypotension [Recovered/Resolved with Sequelae]
  - Intestinal obstruction [Recovered/Resolved with Sequelae]
